FAERS Safety Report 18752246 (Version 1)
Quarter: 2021Q1

REPORT INFORMATION
  Report Type: Spontaneous
  Country: US (occurrence: US)
  Receive Date: 20210118
  Receipt Date: 20210118
  Transmission Date: 20210419
  Serious: No
  Sender: FDA-Public Use
  Company Number: US-FOUNDATIONCONSUMERHC-2020-US-022301

PATIENT
  Age: 17 Year
  Sex: Female
  Weight: 71.21 kg

DRUGS (2)
  1. UNSPECIFIED VITAMINS [Concomitant]
     Active Substance: VITAMINS
  2. PLAN B ONE?STEP [Suspect]
     Active Substance: LEVONORGESTREL
     Indication: CONTRACEPTION
     Dosage: ONCE ON 26?OCT?2020, THREE TIMES ON 27?OCT?2020, TWO TIMES ON 28?OCT?2020, AND ONCE ON 30?OCT?2020 (
     Route: 048
     Dates: start: 20201026, end: 20201030

REACTIONS (4)
  - Intentional product misuse [Recovered/Resolved]
  - Nausea [Recovered/Resolved]
  - Abdominal pain upper [Recovered/Resolved]
  - Product use in unapproved indication [Recovered/Resolved]

NARRATIVE: CASE EVENT DATE: 20201026
